FAERS Safety Report 7180436-9 (Version None)
Quarter: 2010Q4

REPORT INFORMATION
  Report Type: 
  Country: None (occurrence: None)
  Receive Date: 20101221
  Receipt Date: 20101208
  Transmission Date: 20110411
  Serious: Yes (Other)
  Sender: FDA-Public Use
  Company Number: US-CELGENEUS-163-20785-10102162

PATIENT
  Sex: Female
  Weight: 100.7 kg

DRUGS (16)
  1. THALOMID [Suspect]
     Indication: MULTIPLE MYELOMA
     Route: 048
     Dates: start: 20050319
  2. THALOMID [Suspect]
     Route: 048
     Dates: end: 20100912
  3. ACYCLOVIR SODIUM [Concomitant]
     Route: 048
  4. ASPIRIN [Concomitant]
     Route: 048
  5. LYRICA [Concomitant]
     Route: 048
  6. MICARDIS [Concomitant]
     Route: 048
  7. POTASSIUM CHLORIDE [Concomitant]
     Route: 048
  8. MAGNESIUM OXIDE [Concomitant]
     Route: 048
  9. CYANOCOBALAMIN [Concomitant]
     Dosage: 1000MCG/ML
     Route: 030
  10. FOLIC ACID [Concomitant]
     Route: 048
  11. MULTIVITAL-M [Concomitant]
     Route: 048
  12. TAMIFLU [Concomitant]
     Route: 048
  13. LEVAQUIN [Concomitant]
     Route: 048
  14. NEUPOGEN [Concomitant]
     Dosage: 300MCG/0.5ML
     Route: 058
  15. PROCRIT [Concomitant]
     Dosage: 40,000 U
     Route: 058
  16. EPOGEN [Concomitant]
     Route: 058

REACTIONS (1)
  - ACUTE MYELOID LEUKAEMIA [None]
